FAERS Safety Report 8521248-0 (Version None)
Quarter: 2012Q3

REPORT INFORMATION
  Report Type: 
  Country: None (occurrence: None)
  Receive Date: 20120719
  Receipt Date: 20120706
  Transmission Date: 20120928
  Serious: Yes (Other)
  Sender: FDA-Public Use
  Company Number: GB-ROCHE-1084923

PATIENT
  Age: 50 Year
  Sex: Female

DRUGS (4)
  1. LAPATINIB [Suspect]
     Indication: BREAST CANCER
     Route: 048
     Dates: start: 20110101
  2. CAPECITABINE [Suspect]
     Route: 048
     Dates: start: 20110101
  3. CAPECITABINE [Suspect]
     Indication: BREAST CANCER
     Dates: start: 20110101
  4. LAPATINIB [Suspect]

REACTIONS (2)
  - DRUG INEFFECTIVE [None]
  - METASTASES TO CENTRAL NERVOUS SYSTEM [None]
